FAERS Safety Report 5988580-6 (Version None)
Quarter: 2008Q4

REPORT INFORMATION
  Report Type: 
  Country: None (occurrence: None)
  Receive Date: 20081210
  Receipt Date: 20081128
  Transmission Date: 20090506
  Serious: No
  Sender: FDA-Public Use
  Company Number: US-ROCHE-600591

PATIENT
  Sex: Female

DRUGS (2)
  1. ISOTRETINOIN [Suspect]
     Indication: ACNE
     Dosage: THE PATIENT WAS DISPENSED ISOTRETINOIN 40 MG CAPSULE ON 04 OCTOBER 2008; TOOK 4 DOSES
     Route: 065
     Dates: start: 20081004, end: 20081110
  2. BIRTH CONTROL PILLS [Concomitant]
     Dosage: FORM: PILL
     Dates: end: 20081020

REACTIONS (2)
  - NO ADVERSE EVENT [None]
  - PREGNANCY [None]
